FAERS Safety Report 6866348 (Version 3)
Quarter: 2013Q3

REPORT INFORMATION
  Report Type: Spontaneous
  Country: US (occurrence: US)
  Receive Date: 20081224
  Receipt Date: 20130731
  Transmission Date: 20140515
  Serious: Yes (Death)
  Sender: FDA-Public Use
  Company Number: US-BIOGENIDEC-2008BI034278

PATIENT
  Age: 65 Year
  Sex: Female

DRUGS (1)
  1. TYSABRI [Suspect]
     Indication: MULTIPLE SCLEROSIS
     Route: 042
     Dates: start: 20070906, end: 20080422

REACTIONS (4)
  - Cystitis [Fatal]
  - Urinary tract infection [Unknown]
  - Malaise [Unknown]
  - Multiple sclerosis [Recovered/Resolved]
